FAERS Safety Report 8400854-8 (Version None)
Quarter: 2012Q2

REPORT INFORMATION
  Report Type: 
  Country: None (occurrence: None)
  Receive Date: 20120601
  Receipt Date: 20120526
  Transmission Date: 20120825
  Serious: Yes (Hospitalization)
  Sender: FDA-Public Use
  Company Number: IT-BRISTOL-MYERS SQUIBB COMPANY-16215006

PATIENT
  Age: 74 Year
  Sex: Female

DRUGS (8)
  1. OMEPRAZOLE [Concomitant]
  2. METFORMIN HCL [Concomitant]
     Indication: DIABETES MELLITUS
  3. ESKIM [Concomitant]
  4. TAMSULOSIN HYDROCHLORIDE [Concomitant]
  5. COUMADIN [Suspect]
     Indication: MYOCARDIAL ISCHAEMIA
     Dosage: INTRP ON 3JUN11
     Route: 048
     Dates: start: 20080101
  6. ASPIRIN [Suspect]
     Route: 048
     Dates: start: 20080101, end: 20110603
  7. MICARDIS [Concomitant]
     Indication: HYPERTENSION
  8. ATORVASTATIN CALCIUM [Concomitant]

REACTIONS (2)
  - GASTROINTESTINAL HAEMORRHAGE [None]
  - ANAEMIA [None]
